FAERS Safety Report 10028217 (Version 2)
Quarter: 2014Q2

REPORT INFORMATION
  Report Type: Spontaneous
  Country: US (occurrence: None)
  Receive Date: 20140319
  Receipt Date: 20140502
  Transmission Date: 20141212
  Serious: Yes (Hospitalization)
  Sender: FDA-Public Use
  Company Number: UTC-045622

PATIENT
  Age: 66 Year
  Sex: Female
  Weight: 65.7 kg

DRUGS (2)
  1. REMODULIN [Suspect]
     Indication: COR PULMONALE CHRONIC
     Dosage: 57.6 UG/KG (0.04 UG/KG, 1 IN 1 MIN), INTRAVENOUS
     Route: 042
     Dates: start: 20130809
  2. REVATIO [Concomitant]

REACTIONS (3)
  - Cerebrovascular accident [None]
  - Aphasia [None]
  - Hemiparesis [None]
